FAERS Safety Report 14023869 (Version 1)
Quarter: 2017Q3

REPORT INFORMATION
  Report Type: Spontaneous
  Country: US (occurrence: US)
  Receive Date: 20170929
  Receipt Date: 20170929
  Transmission Date: 20171128
  Serious: Yes (Hospitalization)
  Sender: FDA-Public Use
  Company Number: US-BIOGEN-2017BI00465192

PATIENT
  Sex: Male

DRUGS (1)
  1. AVONEX [Suspect]
     Active Substance: INTERFERON BETA-1A
     Indication: MULTIPLE SCLEROSIS
     Route: 065

REACTIONS (9)
  - Hemianaesthesia [Unknown]
  - Paraesthesia [Unknown]
  - Respiratory disorder [Unknown]
  - Nerve injury [Unknown]
  - Grip strength decreased [Unknown]
  - Motor dysfunction [Unknown]
  - Hypoaesthesia [Unknown]
  - Agitation [Unknown]
  - Mobility decreased [Unknown]
